FAERS Safety Report 25461289 (Version 1)
Quarter: 2025Q2

REPORT INFORMATION
  Report Type: Spontaneous
  Country: DE (occurrence: DE)
  Receive Date: 20250620
  Receipt Date: 20250620
  Transmission Date: 20250717
  Serious: Yes (Hospitalization, Other)
  Sender: TEVA
  Company Number: DE-EMB-M202402668-1

PATIENT
  Sex: Male
  Weight: 2.88 kg

DRUGS (4)
  1. DOXEPIN [Suspect]
     Active Substance: DOXEPIN
     Indication: Anxiety
     Route: 064
     Dates: start: 202312, end: 202409
  2. LORAZEPAM [Suspect]
     Active Substance: LORAZEPAM
     Indication: Borderline personality disorder
     Route: 064
     Dates: start: 202312, end: 202409
  3. FOLIC ACID [Concomitant]
     Active Substance: FOLIC ACID
     Indication: Prophylaxis of neural tube defect
     Route: 064
  4. NALOXONE HYDROCHLORIDE\TILIDINE HYDROCHLORIDE [Suspect]
     Active Substance: NALOXONE HYDROCHLORIDE\TILIDINE HYDROCHLORIDE
     Indication: Intervertebral disc protrusion
     Route: 064
     Dates: start: 202312, end: 202409

REACTIONS (2)
  - Drug withdrawal syndrome neonatal [Recovered/Resolved]
  - Foetal exposure during pregnancy [Unknown]

NARRATIVE: CASE EVENT DATE: 20240901
